FAERS Safety Report 7915059-4 (Version None)
Quarter: 2011Q4

REPORT INFORMATION
  Report Type: 
  Country: None (occurrence: None)
  Receive Date: 20111115
  Receipt Date: 20111108
  Transmission Date: 20120403
  Serious: Yes (Other)
  Sender: FDA-Public Use
  Company Number: US-ABBOTT-11P-163-0872659-00

PATIENT
  Sex: Female

DRUGS (10)
  1. ALBUTEROL [Concomitant]
     Indication: ASTHMA
     Dosage: NEBULIZER, TWICE DAILY
     Route: 055
  2. ENALAPRIL MALEATE [Concomitant]
     Indication: HYPERTENSION
  3. IPRATROPIUM BROMIDE [Concomitant]
     Indication: ASTHMA
     Dosage: NEBULIZER, TWICE DAILY
     Route: 055
  4. ZETIA [Concomitant]
     Indication: PRODUCT USED FOR UNKNOWN INDICATION
     Dates: end: 20111001
  5. HUMIRA [Suspect]
     Indication: RHEUMATOID ARTHRITIS
     Route: 058
     Dates: start: 20100513, end: 20110301
  6. ACIPHEX [Concomitant]
     Indication: GASTROOESOPHAGEAL REFLUX DISEASE
     Dosage: TWO TABS IN AM AND IN PM
  7. LEFLUNOMIDE [Concomitant]
     Indication: RHEUMATOID ARTHRITIS
     Dates: start: 19960101
  8. SIMVASTATIN [Concomitant]
     Indication: PRODUCT USED FOR UNKNOWN INDICATION
     Dates: end: 20111001
  9. PREDNISONE [Concomitant]
     Indication: RHEUMATOID ARTHRITIS
  10. ADVAIR DISKUS 100/50 [Concomitant]
     Indication: ASTHMA

REACTIONS (3)
  - PNEUMONIA [None]
  - POSITRON EMISSION TOMOGRAM ABNORMAL [None]
  - LUNG CARCINOMA CELL TYPE UNSPECIFIED STAGE IV [None]
